FAERS Safety Report 22113395 (Version 3)
Quarter: 2023Q2

REPORT INFORMATION
  Report Type: Spontaneous
  Country: JP (occurrence: JP)
  Receive Date: 20230320
  Receipt Date: 20230411
  Transmission Date: 20230721
  Serious: Yes (Other)
  Sender: FDA-Public Use
  Company Number: JP-CHUGAI-2023008835

PATIENT
  Age: 9 Year
  Sex: Male

DRUGS (7)
  1. RITUXAN [Suspect]
     Active Substance: RITUXIMAB
     Indication: Nephrotic syndrome
     Dosage: 500 MILLIGRAM
     Route: 041
     Dates: start: 20221006
  2. RITUXAN [Suspect]
     Active Substance: RITUXIMAB
     Dosage: 500 MILLIGRAM
     Route: 041
     Dates: start: 20221006, end: 20221006
  3. CELLCEPT [Suspect]
     Active Substance: MYCOPHENOLATE MOFETIL
     Indication: Nephrotic syndrome
     Dosage: UNK
     Route: 048
  4. NEORAL [Suspect]
     Active Substance: CYCLOSPORINE
     Indication: Nephrotic syndrome
     Dosage: UNK
     Route: 048
     Dates: start: 20150901, end: 202103
  5. NEORAL [Suspect]
     Active Substance: CYCLOSPORINE
     Dosage: UNK
     Route: 048
     Dates: end: 202103
  6. MIZORIBINE [Concomitant]
     Active Substance: MIZORIBINE
     Indication: Nephrotic syndrome
     Dosage: 300 MILLIGRAM/DAY
     Route: 048
     Dates: start: 20150720
  7. PREDONINE [Concomitant]
     Active Substance: PREDNISOLONE
     Indication: Nephrotic syndrome
     Dosage: UNK
     Route: 065

REACTIONS (4)
  - Nephrotic syndrome [Unknown]
  - Agranulocytosis [Recovered/Resolved]
  - Nephropathy toxic [Unknown]
  - Off label use [Unknown]

NARRATIVE: CASE EVENT DATE: 20230217
